FAERS Safety Report 9110056 (Version 1)
Quarter: 2013Q1

REPORT INFORMATION
  Report Type: Spontaneous
  Country: US (occurrence: US)
  Receive Date: 20130222
  Receipt Date: 20130222
  Transmission Date: 20140127
  Serious: Yes (Other)
  Sender: FDA-Public Use
  Company Number: US-PFIZER INC-2013065254

PATIENT
  Age: 66 Year
  Sex: Female
  Weight: 51.25 kg

DRUGS (5)
  1. METAXALONE [Suspect]
     Indication: MUSCLE SPASMS
     Dosage: 800 MG, 2X/DAY
     Route: 048
     Dates: start: 20110120
  2. METAXALONE [Suspect]
     Indication: MUSCLE STRAIN
     Dosage: 800 MG, 2X/DAY
     Route: 048
     Dates: start: 201302, end: 20130218
  3. CALCIUM [Concomitant]
     Dosage: UNK
  4. VITAMIN D [Concomitant]
     Dosage: UNK, 1X/DAY
  5. PREMPRO [Concomitant]
     Dosage: ONE TABLET TIW (THREE TIMES WEEKLY)

REACTIONS (5)
  - Coeliac disease [Unknown]
  - Diarrhoea [Unknown]
  - Muscle strain [Recovered/Resolved]
  - Abdominal discomfort [Recovered/Resolved]
  - Feeling abnormal [Recovered/Resolved]
